FAERS Safety Report 25920913 (Version 1)
Quarter: 2025Q4

REPORT INFORMATION
  Report Type: Spontaneous
  Country: US (occurrence: US)
  Receive Date: 20251014
  Receipt Date: 20251014
  Transmission Date: 20260118
  Serious: Yes (Hospitalization)
  Sender: AMGEN
  Company Number: US-AMGEN-USASP2025201718

PATIENT
  Age: 19 Year
  Sex: Male

DRUGS (5)
  1. PREDNISONE [Suspect]
     Active Substance: PREDNISONE
     Indication: Complement factor abnormal
     Dosage: UNK (TAPER)
     Route: 065
  2. PREDNISONE [Suspect]
     Active Substance: PREDNISONE
     Indication: Acute haemorrhagic leukoencephalitis
  3. METHYLPREDNISOLONE [Concomitant]
     Active Substance: METHYLPREDNISOLONE
     Indication: Complement factor abnormal
     Dosage: 1 GRAM
     Route: 040
  4. CYCLOPHOSPHAMIDE [Concomitant]
     Active Substance: CYCLOPHOSPHAMIDE
     Indication: Acute haemorrhagic leukoencephalitis
     Dosage: 1 GRAM/ SQUARE METRE
     Route: 065
  5. ANAKINRA [Concomitant]
     Active Substance: ANAKINRA
     Indication: Complement factor abnormal
     Dosage: 100 MILLIGRAM, Q8H
     Route: 040

REACTIONS (1)
  - Nosocomial infection [Unknown]
